FAERS Safety Report 25492321 (Version 3)
Quarter: 2025Q3

REPORT INFORMATION
  Report Type: Report from Study
  Country: EU (occurrence: EU)
  Receive Date: 20250630
  Receipt Date: 20250926
  Transmission Date: 20251020
  Serious: Yes (Other)
  Sender: ROCHE
  Company Number: EU-ROCHE-10000319199

PATIENT
  Age: 62 Year
  Sex: Female
  Weight: 69 kg

DRUGS (5)
  1. INAVOLISIB [Suspect]
     Active Substance: INAVOLISIB
     Indication: Breast cancer
     Route: 048
     Dates: start: 20250602
  2. INAVOLISIB [Suspect]
     Active Substance: INAVOLISIB
     Route: 048
  3. FULVESTRANT [Suspect]
     Active Substance: FULVESTRANT
     Indication: Breast cancer
     Route: 030
     Dates: start: 20250506
  4. PALBOCICLIB [Suspect]
     Active Substance: PALBOCICLIB
     Indication: Breast cancer
     Route: 048
     Dates: start: 20250602
  5. PALBOCICLIB [Suspect]
     Active Substance: PALBOCICLIB
     Route: 065

REACTIONS (6)
  - Haematotoxicity [Unknown]
  - Asthenia [Recovered/Resolved]
  - Hyperglycaemia [Recovered/Resolved]
  - Anaemia [Recovered/Resolved]
  - Neutropenia [Recovered/Resolved]
  - Thrombocytopenia [Recovered/Resolved]

NARRATIVE: CASE EVENT DATE: 20250616
